FAERS Safety Report 8585677 (Version 19)
Quarter: 2016Q1

REPORT INFORMATION
  Report Type: Spontaneous
  Country: US (occurrence: US)
  Receive Date: 20120912
  Receipt Date: 20160225
  Transmission Date: 20160526
  Serious: Yes (Death, Hospitalization, Other)
  Sender: FDA-Public Use
  Company Number: US-GLAXOSMITHKLINE-A0971518A

PATIENT
  Age: 32 Year
  Sex: Female

DRUGS (10)
  1. FLOLAN [Suspect]
     Active Substance: EPOPROSTENOL SODIUM
     Dosage: 80 DF, CO
     Route: 042
  2. FLOLAN [Suspect]
     Active Substance: EPOPROSTENOL SODIUM
     Dosage: 116 DF, CO
     Route: 042
     Dates: start: 20100225, end: 20160122
  3. FLOLAN [Suspect]
     Active Substance: EPOPROSTENOL SODIUM
     Dosage: 80 NG/KG/MIN, CONCENTRATION 135,000 NG/ML, PUMP RATE 90 ML/DAY, VIAL STRENGTH 1.5 MG, CO
     Route: 042
  4. FLOLAN [Suspect]
     Active Substance: EPOPROSTENOL SODIUM
     Indication: PULMONARY ARTERIAL HYPERTENSION
     Dosage: 23 NG/KG/MIN79.5 NG/KG/MIN, CONCENTRATION 135,000 NG/ML, PUMP RATE 90 ML/DAY, VIAL STRENGTH 1.5 MG
     Route: 042
     Dates: start: 20100217, end: 20160122
  5. REVATIO [Concomitant]
     Active Substance: SILDENAFIL CITRATE
     Indication: PRODUCT USED FOR UNKNOWN INDICATION
  6. FLOLAN [Suspect]
     Active Substance: EPOPROSTENOL SODIUM
     Dosage: 79.5 NG/KG/MIN
  7. FLOLAN [Suspect]
     Active Substance: EPOPROSTENOL SODIUM
     Dosage: 103 DF, CO
     Route: 042
     Dates: start: 20100225
  8. FLOLAN [Suspect]
     Active Substance: EPOPROSTENOL SODIUM
     Dosage: UNK
     Dates: start: 20100217
  9. LETAIRIS [Concomitant]
     Active Substance: AMBRISENTAN
     Indication: PRODUCT USED FOR UNKNOWN INDICATION
     Dosage: UNK
  10. WARFARIN [Concomitant]
     Active Substance: WARFARIN
     Indication: PRODUCT USED FOR UNKNOWN INDICATION

REACTIONS (40)
  - Cholelithiasis [Recovering/Resolving]
  - Hypovolaemia [Unknown]
  - Parkinson^s disease [Unknown]
  - Asthenia [Recovering/Resolving]
  - Fluid overload [Unknown]
  - Thrombocytopenia [Unknown]
  - Hospitalisation [Recovered/Resolved]
  - Nasopharyngitis [Recovering/Resolving]
  - Emergency care [Unknown]
  - Oedema [Unknown]
  - Dyspnoea [Unknown]
  - Vomiting [Unknown]
  - Cholangitis [Unknown]
  - Hepatectomy [Recovering/Resolving]
  - Sepsis [Recovering/Resolving]
  - Tachycardia [Unknown]
  - Anaemia [Unknown]
  - Leukopenia [Unknown]
  - Pneumonia [Unknown]
  - Weight decreased [Unknown]
  - Pyrexia [Unknown]
  - Chills [Unknown]
  - Myocardial infarction [Unknown]
  - Death [Fatal]
  - Abdominal pain upper [Recovering/Resolving]
  - Cholecystectomy [Recovering/Resolving]
  - Gastrointestinal tube insertion [Recovering/Resolving]
  - Dizziness [Recovering/Resolving]
  - Bile duct stone [Unknown]
  - Hypotension [Unknown]
  - Hypervolaemia [Unknown]
  - Abdominal pain [Recovering/Resolving]
  - Respiratory failure [Unknown]
  - Furuncle [Recovered/Resolved]
  - Malaise [Recovered/Resolved]
  - Urine output decreased [Unknown]
  - Hypoxia [Unknown]
  - Intensive care [Unknown]
  - Nausea [Recovering/Resolving]
  - Back pain [Recovering/Resolving]

NARRATIVE: CASE EVENT DATE: 20120216
